FAERS Safety Report 10374741 (Version 1)
Quarter: 2014Q3

REPORT INFORMATION
  Report Type: Spontaneous
  Country: GB (occurrence: GB)
  Receive Date: 20140811
  Receipt Date: 20140811
  Transmission Date: 20150326
  Serious: Yes (Other)
  Sender: FDA-Public Use
  Company Number: GB-TEVA-500077ISR

PATIENT
  Age: 52 Year

DRUGS (2)
  1. ALENDRONIC ACID [Suspect]
     Active Substance: ALENDRONIC ACID
     Dosage: 350MG
     Route: 048
  2. DEFEROXAMINE [Concomitant]
     Active Substance: DEFEROXAMINE\DEFEROXAMINE MESYLATE
     Indication: CHELATION THERAPY
     Dosage: 3G/KG; 4 NIGHTS/WEEK
     Route: 065

REACTIONS (3)
  - Thalassaemia beta [Unknown]
  - Condition aggravated [Unknown]
  - Osteonecrosis of jaw [Recovering/Resolving]
